FAERS Safety Report 7083591-4 (Version None)
Quarter: 2010Q4

REPORT INFORMATION
  Report Type: 
  Country: None (occurrence: None)
  Receive Date: 20101103
  Receipt Date: 20101103
  Transmission Date: 20110411
  Serious: Yes (Hospitalization)
  Sender: FDA-Public Use
  Company Number: None

PATIENT
  Age: 57 Year
  Sex: Male
  Weight: 68 kg

DRUGS (1)
  1. VIBATIV [Suspect]
     Dosage: TELAVANCIN 850 MG Q 24 HOURS IV BOLUS
     Route: 040
     Dates: start: 20101018, end: 20101019

REACTIONS (3)
  - ANGIOEDEMA [None]
  - EYE SWELLING [None]
  - LIP SWELLING [None]
